FAERS Safety Report 11011393 (Version 1)
Quarter: 2015Q2

REPORT INFORMATION
  Report Type: Spontaneous
  Country: FR (occurrence: FR)
  Receive Date: 20150410
  Receipt Date: 20150410
  Transmission Date: 20150821
  Serious: Yes (Life-Threatening, Hospitalization)
  Sender: FDA-Public Use
  Company Number: FR-ASTRAZENECA-2015SE32711

PATIENT
  Age: 75 Year
  Sex: Male

DRUGS (4)
  1. AMLOR [Suspect]
     Active Substance: AMLODIPINE BESYLATE
     Route: 048
     Dates: end: 20141116
  2. ATENOLOL. [Suspect]
     Active Substance: ATENOLOL
     Route: 048
     Dates: end: 20141116
  3. PLAVIX [Suspect]
     Active Substance: CLOPIDOGREL BISULFATE
     Route: 048
     Dates: end: 20141116
  4. CRESTOR [Suspect]
     Active Substance: ROSUVASTATIN CALCIUM
     Route: 048
     Dates: end: 20141116

REACTIONS (4)
  - Sinus bradycardia [Recovered/Resolved]
  - Cardio-respiratory arrest [Recovered/Resolved]
  - Acute coronary syndrome [Unknown]
  - Coma scale abnormal [Unknown]

NARRATIVE: CASE EVENT DATE: 20141116
